FAERS Safety Report 8592883-9 (Version None)
Quarter: 2012Q3

REPORT INFORMATION
  Report Type: 
  Country: None (occurrence: None)
  Receive Date: 20120814
  Receipt Date: 20120806
  Transmission Date: 20120928
  Serious: Yes (Other)
  Sender: FDA-Public Use
  Company Number: US-ABBOTT-12P-163-0965800-00

PATIENT
  Sex: Female

DRUGS (16)
  1. NAPROXEN [Concomitant]
     Indication: BACK PAIN
  2. FLEXERIL [Concomitant]
     Indication: PRODUCT USED FOR UNKNOWN INDICATION
  3. TRICOR [Concomitant]
     Indication: PRODUCT USED FOR UNKNOWN INDICATION
     Dosage: AT BEDTIME
  4. HUMIRA [Suspect]
     Indication: MUCOSAL ULCERATION
  5. TRAZODONE HYDROCHLORIDE [Concomitant]
     Indication: PRODUCT USED FOR UNKNOWN INDICATION
  6. LEXAPRO [Concomitant]
     Indication: PRODUCT USED FOR UNKNOWN INDICATION
     Dosage: IN THE MORNING
  7. AMBIEN [Concomitant]
     Indication: INSOMNIA
     Dosage: AT BEDTIME
  8. MIRAPEX [Concomitant]
     Indication: RESTLESS LEGS SYNDROME
  9. CYMBALTA [Concomitant]
     Indication: PRODUCT USED FOR UNKNOWN INDICATION
     Dosage: 90 MG THROUGH THE DAY
  10. CLARITIN [Concomitant]
     Indication: PRODUCT USED FOR UNKNOWN INDICATION
     Dosage: 10 MG DAILY
  11. NEURONTIN [Concomitant]
     Indication: FIBROMYALGIA
  12. HUMIRA [Suspect]
     Indication: BEHCET'S SYNDROME
  13. JANUMET [Concomitant]
     Indication: DIABETES MELLITUS
     Dosage: 50/100 MG
  14. LIPITOR [Concomitant]
     Indication: PRODUCT USED FOR UNKNOWN INDICATION
     Dosage: AT BEDTIME
  15. BENICAR HCT [Concomitant]
     Indication: BLOOD PRESSURE
     Dosage: 320/25 MG
  16. VITAMIN D [Concomitant]
     Indication: PRODUCT USED FOR UNKNOWN INDICATION

REACTIONS (10)
  - COUGH [None]
  - CARPAL TUNNEL SYNDROME [None]
  - ARTHRALGIA [None]
  - INJECTION SITE MASS [None]
  - APHONIA [None]
  - PAIN IN EXTREMITY [None]
  - INJECTION SITE PAIN [None]
  - INCORRECT DOSE ADMINISTERED [None]
  - INJECTION SITE EXTRAVASATION [None]
  - POST PROCEDURAL INFECTION [None]
